FAERS Safety Report 19080209 (Version 1)
Quarter: 2021Q1

REPORT INFORMATION
  Report Type: Spontaneous
  Country: DE (occurrence: DE)
  Receive Date: 20210331
  Receipt Date: 20210331
  Transmission Date: 20210420
  Serious: Yes (Other)
  Sender: FDA-Public Use
  Company Number: DE-BAYER-2021-112900

PATIENT
  Age: 38 Year
  Sex: Female

DRUGS (4)
  1. MULTIVITAMIN + MINERAL [Concomitant]
     Active Substance: MINERALS\VITAMINS
     Indication: NUTRITIONAL SUPPLEMENTATION
  2. KYLEENA [Suspect]
     Active Substance: LEVONORGESTREL
     Dosage: 17.5 ?G PER DAY CONTINUOUSLY
     Route: 015
     Dates: start: 201912
  3. MAXIM [DIENOGEST;ETHINYLESTRADIOL] [Suspect]
     Active Substance: DIENOGEST\ETHINYL ESTRADIOL
     Dosage: 1 DF, QD
     Route: 048
     Dates: end: 201912
  4. VITAMIN D [VITAMIN D NOS] [Concomitant]
     Active Substance: VITAMIN D NOS
     Indication: NUTRITIONAL SUPPLEMENTATION

REACTIONS (20)
  - Tachyphrenia [Not Recovered/Not Resolved]
  - Dry mouth [Not Recovered/Not Resolved]
  - Aphasia [Not Recovered/Not Resolved]
  - Premenstrual syndrome [Not Recovered/Not Resolved]
  - Apathy [Not Recovered/Not Resolved]
  - Breast cyst [None]
  - Ovarian cyst [None]
  - Tearfulness [Not Recovered/Not Resolved]
  - Fatigue [Not Recovered/Not Resolved]
  - Dry eye [Not Recovered/Not Resolved]
  - Alopecia [None]
  - Palpitations [Not Recovered/Not Resolved]
  - Restlessness [Not Recovered/Not Resolved]
  - Feeling abnormal [Not Recovered/Not Resolved]
  - Uterine leiomyoma [None]
  - Mucosal dryness [Not Recovered/Not Resolved]
  - Loss of libido [Not Recovered/Not Resolved]
  - Irritability [Not Recovered/Not Resolved]
  - Nasal congestion [Not Recovered/Not Resolved]
  - Adverse event [None]

NARRATIVE: CASE EVENT DATE: 202003
